FAERS Safety Report 9113234 (Version 1)
Quarter: 2013Q1

REPORT INFORMATION
  Report Type: Spontaneous
  Country: CN (occurrence: CN)
  Receive Date: 20130211
  Receipt Date: 20130211
  Transmission Date: 20140127
  Serious: Yes (Other)
  Sender: FDA-Public Use
  Company Number: JP-ASTRAZENECA-2013SE08820

PATIENT
  Sex: Female

DRUGS (2)
  1. BLOPRESS [Suspect]
     Indication: HYPERTENSION
     Route: 048
     Dates: start: 201301
  2. BETA BLOCKERS [Concomitant]
     Route: 065
     Dates: start: 201301

REACTIONS (1)
  - Generalised oedema [Recovered/Resolved]
